FAERS Safety Report 20819042 (Version 1)
Quarter: 2022Q2

REPORT INFORMATION
  Report Type: Report from Study
  Country: CA (occurrence: CA)
  Receive Date: 20220512
  Receipt Date: 20220512
  Transmission Date: 20220721
  Serious: Yes (Other)
  Sender: FDA-Public Use
  Company Number: CA-BAYER-2022A066170

PATIENT
  Age: 76 Year
  Sex: Female

DRUGS (2)
  1. EYLEA [Suspect]
     Active Substance: AFLIBERCEPT
     Indication: Diabetic retinal oedema
     Dosage: LEFT EYE, SOLUTION FOR INJECTION
     Dates: start: 2018
  2. EYLEA [Suspect]
     Active Substance: AFLIBERCEPT
     Indication: Eye haemorrhage
     Dosage: RIGHT EYE, SOLUTION FOR INJECTION
     Dates: start: 2018

REACTIONS (1)
  - Off label use [Unknown]
